FAERS Safety Report 18691469 (Version 9)
Quarter: 2022Q3

REPORT INFORMATION
  Report Type: Report from Study
  Country: IT (occurrence: IT)
  Receive Date: 20210101
  Receipt Date: 20220906
  Transmission Date: 20221027
  Serious: Yes (Hospitalization, Other)
  Sender: FDA-Public Use
  Company Number: IT-TAKEDA-2020TUS046150

PATIENT
  Age: 53 Year
  Sex: Male
  Weight: 80 kg

DRUGS (58)
  1. ADVATE [Suspect]
     Active Substance: ANTIHEMOPHILIC FACTOR, HUMAN RECOMBINANT
     Indication: Prophylaxis
     Dosage: 3000 INTERNATIONAL UNIT, QD
     Route: 042
     Dates: start: 20160502, end: 20160515
  2. ADVATE [Suspect]
     Active Substance: ANTIHEMOPHILIC FACTOR, HUMAN RECOMBINANT
     Indication: Prophylaxis
     Dosage: 3000 INTERNATIONAL UNIT, QD
     Route: 042
     Dates: start: 20160502, end: 20160515
  3. ADVATE [Suspect]
     Active Substance: ANTIHEMOPHILIC FACTOR, HUMAN RECOMBINANT
     Indication: Prophylaxis
     Dosage: 3000 INTERNATIONAL UNIT, QD
     Route: 042
     Dates: start: 20160502, end: 20160515
  4. ADVATE [Suspect]
     Active Substance: ANTIHEMOPHILIC FACTOR, HUMAN RECOMBINANT
     Indication: Pain in extremity
     Dosage: 5000 INTERNATIONAL UNIT, QD
     Route: 042
     Dates: start: 20160516, end: 20160516
  5. ADVATE [Suspect]
     Active Substance: ANTIHEMOPHILIC FACTOR, HUMAN RECOMBINANT
     Indication: Pain in extremity
     Dosage: 5000 INTERNATIONAL UNIT, QD
     Route: 042
     Dates: start: 20160516, end: 20160516
  6. ADVATE [Suspect]
     Active Substance: ANTIHEMOPHILIC FACTOR, HUMAN RECOMBINANT
     Indication: Pain in extremity
     Dosage: 5000 INTERNATIONAL UNIT, QD
     Route: 042
     Dates: start: 20160516, end: 20160516
  7. ADVATE [Suspect]
     Active Substance: ANTIHEMOPHILIC FACTOR, HUMAN RECOMBINANT
     Indication: Staphylococcal infection
     Dosage: 4000 INTERNATIONAL UNIT, QD
     Route: 042
     Dates: start: 20200930, end: 20200930
  8. ADVATE [Suspect]
     Active Substance: ANTIHEMOPHILIC FACTOR, HUMAN RECOMBINANT
     Indication: Staphylococcal infection
     Dosage: 4000 INTERNATIONAL UNIT, QD
     Route: 042
     Dates: start: 20200930, end: 20200930
  9. ADVATE [Suspect]
     Active Substance: ANTIHEMOPHILIC FACTOR, HUMAN RECOMBINANT
     Indication: Staphylococcal infection
     Dosage: 4000 INTERNATIONAL UNIT, QD
     Route: 042
     Dates: start: 20200930, end: 20200930
  10. ADVATE [Suspect]
     Active Substance: ANTIHEMOPHILIC FACTOR, HUMAN RECOMBINANT
     Indication: Factor VIII deficiency
     Dosage: 3000 INTERNATIONAL UNIT
     Route: 042
     Dates: start: 20201019
  11. ADVATE [Suspect]
     Active Substance: ANTIHEMOPHILIC FACTOR, HUMAN RECOMBINANT
     Indication: Factor VIII deficiency
     Dosage: 3000 INTERNATIONAL UNIT
     Route: 042
     Dates: start: 20201019
  12. ADVATE [Suspect]
     Active Substance: ANTIHEMOPHILIC FACTOR, HUMAN RECOMBINANT
     Indication: Factor VIII deficiency
     Dosage: 3000 INTERNATIONAL UNIT
     Route: 042
     Dates: start: 20201019
  13. ADVATE [Suspect]
     Active Substance: ANTIHEMOPHILIC FACTOR, HUMAN RECOMBINANT
     Dosage: 3000 INTERNATIONAL UNIT
     Route: 042
     Dates: start: 20210226
  14. ADVATE [Suspect]
     Active Substance: ANTIHEMOPHILIC FACTOR, HUMAN RECOMBINANT
     Dosage: 3000 INTERNATIONAL UNIT
     Route: 042
     Dates: start: 20210226
  15. ADVATE [Suspect]
     Active Substance: ANTIHEMOPHILIC FACTOR, HUMAN RECOMBINANT
     Dosage: 3000 INTERNATIONAL UNIT
     Route: 042
     Dates: start: 20210226
  16. ADALIMUMAB [Concomitant]
     Active Substance: ADALIMUMAB
     Indication: Psoriasis
     Dosage: UNK
     Route: 065
     Dates: start: 20160920, end: 201709
  17. IRBESARTAN [Concomitant]
     Active Substance: IRBESARTAN
     Indication: Hypertension
     Dosage: 150 MILLIGRAM, QD
     Route: 065
     Dates: start: 20201029
  18. ARCOXIA [Concomitant]
     Active Substance: ETORICOXIB
     Indication: Arthralgia
     Dosage: 90 MILLIGRAM, QD
     Route: 065
     Dates: start: 20180920, end: 20180922
  19. ARCOXIA [Concomitant]
     Active Substance: ETORICOXIB
     Dosage: 60 MILLIGRAM, QD
     Route: 065
     Dates: start: 202101
  20. AMOXICILLIN\CLAVULANATE POTASSIUM [Concomitant]
     Active Substance: AMOXICILLIN\CLAVULANATE POTASSIUM
     Indication: Haematuria
     Dosage: UNK
     Route: 065
     Dates: start: 20161206, end: 20161212
  21. AMOXICILLIN\CLAVULANATE POTASSIUM [Concomitant]
     Active Substance: AMOXICILLIN\CLAVULANATE POTASSIUM
     Indication: Prophylaxis
     Dosage: 1 GRAM, BID
     Route: 065
     Dates: start: 20170426, end: 201705
  22. BACTRIM [Concomitant]
     Active Substance: SULFAMETHOXAZOLE\TRIMETHOPRIM
     Indication: Staphylococcal infection
     Dosage: 180 MILLIGRAM, BID
     Route: 065
     Dates: start: 20210316
  23. CIPROFLOXACIN [Concomitant]
     Active Substance: CIPROFLOXACIN
     Indication: Pyrexia
     Dosage: 500 MILLIGRAM, BID
     Route: 065
     Dates: start: 20181005, end: 20190123
  24. CIPROFLOXACIN [Concomitant]
     Active Substance: CIPROFLOXACIN
     Indication: Antibiotic prophylaxis
     Dosage: 500 MILLIGRAM, BID
     Route: 065
     Dates: start: 20200921, end: 20201005
  25. CIPROFLOXACIN [Concomitant]
     Active Substance: CIPROFLOXACIN
     Indication: Arthralgia
     Dosage: 750 MILLIGRAM, BID
     Route: 065
     Dates: start: 20201006, end: 20201013
  26. CIPROFLOXACIN [Concomitant]
     Active Substance: CIPROFLOXACIN
     Indication: Staphylococcal infection
     Dosage: 500 MILLIGRAM, BID
     Route: 065
     Dates: start: 20201014, end: 20201215
  27. CIPROFLOXACIN [Concomitant]
     Active Substance: CIPROFLOXACIN
     Indication: Joint swelling
  28. CIPROFLOXACIN [Concomitant]
     Active Substance: CIPROFLOXACIN
     Indication: Device related infection
  29. DAPTOMYCIN [Concomitant]
     Active Substance: DAPTOMYCIN
     Indication: Staphylococcal infection
     Dosage: 500 MILLIGRAM, QD
     Route: 065
     Dates: start: 20201005, end: 20201013
  30. DEXAMETHASONE [Concomitant]
     Active Substance: DEXAMETHASONE
     Indication: Pyrexia
     Dosage: 16 MILLIGRAM, QD
     Route: 065
     Dates: start: 20201112, end: 20201114
  31. DEXAMETHASONE [Concomitant]
     Active Substance: DEXAMETHASONE
     Dosage: 8 MILLIGRAM, QD
     Route: 065
     Dates: start: 20201115, end: 20201116
  32. SODIUM FERRIC GLUCONATE COMPLEX [Concomitant]
     Active Substance: SODIUM FERRIC GLUCONATE COMPLEX
     Indication: Staphylococcal infection
     Dosage: 62.5 MILLIGRAM, 3/WEEK
     Dates: start: 20140707, end: 20140724
  33. SODIUM FERRIC GLUCONATE COMPLEX [Concomitant]
     Active Substance: SODIUM FERRIC GLUCONATE COMPLEX
     Indication: Anaemia
  34. FERROUS SULFATE [Concomitant]
     Active Substance: FERROUS SULFATE
     Indication: Anaemia
     Dosage: 1 DOSAGE FORM, QD
     Route: 065
     Dates: start: 20140725
  35. FOLIC ACID [Concomitant]
     Active Substance: FOLIC ACID
     Indication: Anaemia
     Dosage: 5 MILLIGRAM, QD
     Route: 065
     Dates: start: 20100202
  36. LEVOFLOXACIN [Concomitant]
     Active Substance: LEVOFLOXACIN
     Indication: Prophylaxis
     Dosage: 500 MILLIGRAM, QD
     Route: 065
     Dates: start: 20180813, end: 20180820
  37. NEBIVOLOL HYDROCHLORIDE [Concomitant]
     Active Substance: NEBIVOLOL HYDROCHLORIDE
     Indication: Hypertension
     Dosage: 5 MILLIGRAM, AS NEEDED
     Route: 065
     Dates: start: 20110322, end: 20140707
  38. NEBIVOLOL HYDROCHLORIDE [Concomitant]
     Active Substance: NEBIVOLOL HYDROCHLORIDE
     Dosage: 5 MILLIGRAM, QD
     Route: 065
     Dates: start: 20191128
  39. GLECAPREVIR\PIBRENTASVIR [Concomitant]
     Active Substance: GLECAPREVIR\PIBRENTASVIR
     Indication: Infection
     Dosage: 3 DOSAGE FORM, QD
     Route: 065
     Dates: start: 20180712, end: 20180907
  40. MEDROL [Concomitant]
     Active Substance: METHYLPREDNISOLONE
     Indication: Pain in extremity
     Dosage: 8 MILLIGRAM, AS NEEDED
     Dates: start: 20160325, end: 20160516
  41. MEDROL [Concomitant]
     Active Substance: METHYLPREDNISOLONE
     Indication: Swelling
     Dosage: 16 MILLIGRAM, QD
     Dates: start: 20160502, end: 20160516
  42. MEDROL [Concomitant]
     Active Substance: METHYLPREDNISOLONE
     Indication: Psoriasis
     Dosage: 16 MILLIGRAM
     Dates: start: 20160517, end: 20180708
  43. MEDROL [Concomitant]
     Active Substance: METHYLPREDNISOLONE
     Dosage: 16 MILLIGRAM
     Dates: start: 20180814, end: 20180823
  44. MEDROL [Concomitant]
     Active Substance: METHYLPREDNISOLONE
     Dosage: 16 MILLIGRAM, QD
     Route: 065
     Dates: start: 20200917, end: 20200921
  45. MEDROL [Concomitant]
     Active Substance: METHYLPREDNISOLONE
     Dosage: 8 MILLIGRAM, QD
     Dates: start: 20200922, end: 20201005
  46. MEDROL [Concomitant]
     Active Substance: METHYLPREDNISOLONE
     Dosage: 16 MILLIGRAM, QD
     Dates: start: 20190410
  47. MINOCYCLINE [Concomitant]
     Active Substance: MINOCYCLINE HYDROCHLORIDE
     Indication: Arthralgia
     Dosage: 100 MILLIGRAM, QD
     Route: 065
     Dates: start: 20201014, end: 20201215
  48. MINOCYCLINE [Concomitant]
     Active Substance: MINOCYCLINE HYDROCHLORIDE
     Indication: Joint swelling
     Dosage: 100 MILLIGRAM, BID
     Route: 065
     Dates: start: 20210316
  49. MINOCYCLINE [Concomitant]
     Active Substance: MINOCYCLINE HYDROCHLORIDE
     Indication: Staphylococcal infection
  50. MODURETIC 5-50 [Concomitant]
     Active Substance: AMILORIDE HYDROCHLORIDE\HYDROCHLOROTHIAZIDE
     Indication: Hypertension
     Dosage: 22.5 MILLIGRAM, QD
     Route: 065
     Dates: start: 20201029
  51. PANTOPRAZOLE SODIUM [Concomitant]
     Active Substance: PANTOPRAZOLE SODIUM
     Indication: Reflux gastritis
     Dosage: 40 MILLIGRAM, QD
     Route: 065
     Dates: start: 20201029
  52. RIFAMPIN [Concomitant]
     Active Substance: RIFAMPIN
     Indication: Arthralgia
     Dosage: 600 MILLIGRAM, QD
     Route: 065
     Dates: start: 20201014, end: 20201215
  53. RIFAMPIN [Concomitant]
     Active Substance: RIFAMPIN
     Indication: Joint swelling
     Dosage: 600 MILLIGRAM, QD
     Route: 065
     Dates: start: 20210316
  54. RIFAMPIN [Concomitant]
     Active Substance: RIFAMPIN
     Indication: Staphylococcal infection
  55. TAPENTADOL [Concomitant]
     Active Substance: TAPENTADOL
     Indication: Arthralgia
     Dosage: 100 MILLIGRAM, QD
     Route: 065
     Dates: start: 20201014, end: 20201215
  56. TAPENTADOL [Concomitant]
     Active Substance: TAPENTADOL
     Indication: Joint swelling
     Dosage: 100 MILLIGRAM, QD
     Dates: start: 201807
  57. PIPERACILLIN SODIUM\TAZOBACTAM SODIUM [Concomitant]
     Active Substance: PIPERACILLIN SODIUM\TAZOBACTAM SODIUM
  58. LINEZOLID [Concomitant]
     Active Substance: LINEZOLID

REACTIONS (4)
  - Knee arthroplasty [Recovered/Resolved]
  - Joint swelling [Recovered/Resolved]
  - Vascular device infection [Recovered/Resolved]
  - Haematuria [Recovered/Resolved]

NARRATIVE: CASE EVENT DATE: 20170426
